FAERS Safety Report 17003892 (Version 6)
Quarter: 2020Q2

REPORT INFORMATION
  Report Type: Spontaneous
  Country: US (occurrence: US)
  Receive Date: 20191107
  Receipt Date: 20200617
  Transmission Date: 20200713
  Serious: Yes (Other)
  Sender: FDA-Public Use
  Company Number: US-PFIZER INC-2019477726

PATIENT
  Age: 34 Year
  Sex: Female

DRUGS (1)
  1. SKELAXIN [Suspect]
     Active Substance: METAXALONE
     Indication: MUSCLE RELAXANT THERAPY
     Dosage: UNK

REACTIONS (12)
  - Asthenia [Unknown]
  - Malaise [Unknown]
  - Impaired driving ability [Unknown]
  - Swelling [Unknown]
  - Mental impairment [Unknown]
  - Influenza [Unknown]
  - Emotional distress [Unknown]
  - Nasopharyngitis [Unknown]
  - Bronchitis [Unknown]
  - Impaired gastric emptying [Unknown]
  - Vomiting [Unknown]
  - Loss of personal independence in daily activities [Unknown]
